FAERS Safety Report 8578349-0 (Version None)
Quarter: 2012Q3

REPORT INFORMATION
  Report Type: 
  Country: None (occurrence: None)
  Receive Date: 20120808
  Receipt Date: 20120731
  Transmission Date: 20120928
  Serious: Yes (Other)
  Sender: FDA-Public Use
  Company Number: JP-JNJFOC-20120800631

PATIENT

DRUGS (3)
  1. ITRACONAZOLE [Suspect]
     Indication: PULMONARY NECROSIS
     Dosage: TOTAL DOSE: 400MG/DAY
     Route: 042
  2. ITRACONAZOLE [Suspect]
     Route: 048
  3. ITRACONAZOLE [Suspect]
     Dosage: 3 DAYS OR MORE
     Route: 042

REACTIONS (1)
  - PSEUDOMONAS INFECTION [None]
